FAERS Safety Report 7398876-1 (Version None)
Quarter: 2011Q2

REPORT INFORMATION
  Report Type: 
  Country: None (occurrence: None)
  Receive Date: 20110407
  Receipt Date: 20110325
  Transmission Date: 20111010
  Serious: Yes (Other)
  Sender: FDA-Public Use
  Company Number: US-ASTELLAS-2011US001047

PATIENT
  Sex: Female

DRUGS (2)
  1. VIBATIV [Suspect]
     Indication: DIABETIC ULCER
     Dosage: UNK
     Route: 042
     Dates: start: 20110126, end: 20110216
  2. VIBATIV [Suspect]
     Indication: OSTEOMYELITIS

REACTIONS (1)
  - NEUTROPHIL COUNT DECREASED [None]
